FAERS Safety Report 5315173-6 (Version None)
Quarter: 2007Q2

REPORT INFORMATION
  Report Type: 
  Country: None (occurrence: None)
  Receive Date: 20070427
  Receipt Date: 20070418
  Transmission Date: 20071010
  Serious: Yes (Life-Threatening, Hospitalization)
  Sender: FDA-Public Use
  Company Number: 430002K07DEU

PATIENT
  Age: 51 Year
  Sex: Female

DRUGS (1)
  1. NOVANTRONE [Suspect]

REACTIONS (10)
  - ACCIDENTAL EXPOSURE [None]
  - ATRIOVENTRICULAR BLOCK COMPLETE [None]
  - BREAST PAIN [None]
  - CONTUSION [None]
  - DYSPNOEA [None]
  - FACIAL BONES FRACTURE [None]
  - FALL [None]
  - LOSS OF CONSCIOUSNESS [None]
  - NAUSEA [None]
  - SYNCOPE [None]
